FAERS Safety Report 5669934-4 (Version None)
Quarter: 2008Q1

REPORT INFORMATION
  Report Type: 
  Country: None (occurrence: None)
  Receive Date: 20080317
  Receipt Date: 20080303
  Transmission Date: 20080703
  Serious: No
  Sender: FDA-Public Use
  Company Number: US-BAXTER-2008BH002182

PATIENT

DRUGS (1)
  1. HEPARIN SODIUM [Suspect]
     Indication: DRUG USE FOR UNKNOWN INDICATION
     Dosage: DOSE UNIT:UNKNOWN
     Route: 058
     Dates: end: 20080128

REACTIONS (5)
  - INJECTION SITE BRUISING [None]
  - INJECTION SITE HAEMATOMA [None]
  - INJECTION SITE VESICLES [None]
  - RASH ERYTHEMATOUS [None]
  - WOUND [None]
